FAERS Safety Report 11916966 (Version 2)
Quarter: 2016Q1

REPORT INFORMATION
  Report Type: Spontaneous
  Country: US (occurrence: US)
  Receive Date: 20160114
  Receipt Date: 20160216
  Transmission Date: 20160526
  Serious: No
  Sender: FDA-Public Use
  Company Number: US-PFIZER INC-2015449325

PATIENT
  Sex: Male

DRUGS (2)
  1. VFEND [Suspect]
     Active Substance: VORICONAZOLE
     Indication: ASPERGILLUS INFECTION
     Dosage: 200 MG, 1X/DAY
     Dates: start: 201507, end: 20150731
  2. VFEND [Suspect]
     Active Substance: VORICONAZOLE
     Dosage: 200 MG, 1X/DAY
     Dates: start: 201510, end: 20151015

REACTIONS (2)
  - Musculoskeletal pain [Not Recovered/Not Resolved]
  - Periarthritis [Not Recovered/Not Resolved]
